FAERS Safety Report 8877405 (Version 1)
Quarter: 2012Q4

REPORT INFORMATION
  Report Type: 
  Country: US (occurrence: US)
  Receive Date: 20121024
  Receipt Date: 20121024
  Transmission Date: 20130627
  Serious: Yes (Hospitalization)
  Sender: FDA-Public Use
  Company Number: US-PFIZER INC-2012265652

PATIENT
  Age: 27 Year
  Sex: Female
  Weight: 60.77 kg

DRUGS (1)
  1. RELPAX [Suspect]
     Indication: MIGRAINE
     Dosage: UNK, 1x/day
     Route: 048
     Dates: start: 20120818, end: 20120819

REACTIONS (1)
  - Convulsion [Recovered/Resolved]
